FAERS Safety Report 8600101-8 (Version None)
Quarter: 2012Q3

REPORT INFORMATION
  Report Type: 
  Country: None (occurrence: None)
  Receive Date: 20120816
  Receipt Date: 20120809
  Transmission Date: 20120928
  Serious: Yes (Other)
  Sender: FDA-Public Use
  Company Number: US-BAXTER-2012BAX013469

PATIENT
  Sex: Male

DRUGS (1)
  1. DIANEAL [Suspect]
     Route: 033

REACTIONS (2)
  - UNRESPONSIVE TO STIMULI [None]
  - BLOOD GLUCOSE ABNORMAL [None]
